FAERS Safety Report 4814216-3 (Version None)
Quarter: 2005Q4

REPORT INFORMATION
  Report Type: 
  Country: None (occurrence: None)
  Receive Date: 20051028
  Receipt Date: 20050719
  Transmission Date: 20060501
  Serious: No
  Sender: FDA-Public Use
  Company Number: US-GLAXOSMITHKLINE-A0567069A

PATIENT
  Age: 9 Year
  Sex: Female
  Weight: 29.5 kg

DRUGS (3)
  1. ADVAIR DISKUS 100/50 [Suspect]
     Indication: COUGH
     Dosage: 1PUFF TWICE PER DAY
     Route: 055
     Dates: start: 20041101, end: 20050101
  2. SINGULAIR [Concomitant]
     Dosage: 5MG PER DAY
     Route: 065
     Dates: start: 20040601
  3. ALBUTEROL [Concomitant]
     Indication: COUGH

REACTIONS (3)
  - ATTENTION DEFICIT/HYPERACTIVITY DISORDER [None]
  - DISTRACTIBILITY [None]
  - DISTURBANCE IN ATTENTION [None]
